FAERS Safety Report 5253269-8 (Version None)
Quarter: 2007Q1

REPORT INFORMATION
  Report Type: 
  Country: None (occurrence: None)
  Receive Date: 20070301
  Receipt Date: 20070220
  Transmission Date: 20070707
  Serious: Yes (Hospitalization, Other)
  Sender: FDA-Public Use
  Company Number: US-ELI_LILLY_AND_COMPANY-US200702003959

PATIENT
  Age: 81 Year
  Sex: Female

DRUGS (8)
  1. FORTEO [Suspect]
     Indication: OSTEOPOROSIS
     Dosage: UNK D/F, UNKNOWN
     Dates: start: 20050601
  2. POTASSIUM ACETATE [Concomitant]
  3. PREDNISONE [Concomitant]
     Indication: SYSTEMIC LUPUS ERYTHEMATOSUS
     Dosage: 7 MG, DAILY (1/D)
  4. FUROSEMIDE [Concomitant]
     Dosage: 40 MG, DAILY (1/D)
  5. PACERONE [Concomitant]
  6. ULTRACET [Concomitant]
     Indication: PAIN
  7. HYDROXYZINE [Concomitant]
     Indication: PRURITUS
  8. ATENOLOL [Concomitant]
     Dosage: 25 MG, DAILY (1/D)

REACTIONS (5)
  - ARRHYTHMIA [None]
  - CARDIAC VALVE DISEASE [None]
  - DEHYDRATION [None]
  - PRURITUS [None]
  - RENAL DISORDER [None]
